FAERS Safety Report 10987056 (Version 2)
Quarter: 2015Q2

REPORT INFORMATION
  Report Type: Spontaneous
  Country: FR (occurrence: FR)
  Receive Date: 20150404
  Receipt Date: 20150409
  Transmission Date: 20150821
  Serious: Yes (Death, Other)
  Sender: FDA-Public Use
  Company Number: FR-009507513-1504FRA000822

PATIENT
  Age: 44 Year
  Sex: Female

DRUGS (10)
  1. IBUPROFEN. [Suspect]
     Active Substance: IBUPROFEN
     Indication: CHEST PAIN
     Dosage: UNKNOWN
     Route: 048
     Dates: start: 20150215, end: 20150215
  2. MORPHINE [Concomitant]
     Active Substance: MORPHINE
     Dosage: UNKNOWN
  3. HEPARIN SODIUM. [Suspect]
     Active Substance: HEPARIN SODIUM
     Indication: ACUTE CORONARY SYNDROME
     Dosage: 3000 IU, ONCE
     Route: 065
     Dates: start: 20150215, end: 20150215
  4. TRANXENE T-TAB [Concomitant]
     Active Substance: CLORAZEPATE DIPOTASSIUM
     Dosage: UNKNOWN
  5. HORMONAL CONTRACEPTIVES (UNSPECIFIED) [Concomitant]
     Active Substance: UNSPECIFIED INGREDIENT
     Dosage: UNKNOWN
     Route: 048
  6. RISORDAN [Concomitant]
     Active Substance: ISOSORBIDE DINITRATE
     Dosage: UNKNOWN
  7. EPTIFIBATIDE [Suspect]
     Active Substance: EPTIFIBATIDE
     Indication: ANGIOPLASTY
     Dosage: UNK
     Route: 042
     Dates: start: 20150215, end: 20150215
  8. ASPIRIN. [Suspect]
     Active Substance: ASPIRIN
     Indication: ACUTE CORONARY SYNDROME
     Dosage: 250 MG, ONCE
     Route: 065
     Dates: start: 20150215, end: 20150215
  9. EFIENT [Suspect]
     Active Substance: PRASUGREL HYDROCHLORIDE
     Indication: ACUTE CORONARY SYNDROME
     Dosage: 60 MG, ONCE
     Route: 065
     Dates: start: 20150215, end: 20150215
  10. ISOPTIN [Concomitant]
     Active Substance: VERAPAMIL HYDROCHLORIDE
     Dosage: UNKNOWN

REACTIONS (1)
  - Cerebral haematoma [Fatal]

NARRATIVE: CASE EVENT DATE: 20150215
